FAERS Safety Report 21813363 (Version 2)
Quarter: 2023Q1

REPORT INFORMATION
  Report Type: Spontaneous
  Country: CN (occurrence: CN)
  Receive Date: 20230103
  Receipt Date: 20230105
  Transmission Date: 20230417
  Serious: Yes (Other)
  Sender: FDA-Public Use
  Company Number: CN-BRISTOL-MYERS SQUIBB COMPANY-2023-000237

PATIENT
  Age: 58 Year
  Sex: Male
  Weight: 59.5 kg

DRUGS (6)
  1. CARBOPLATIN [Suspect]
     Active Substance: CARBOPLATIN
     Indication: Squamous cell carcinoma of lung
     Dosage: REFER TO NARRATIVEINCLUDECLINICAL
     Route: 041
     Dates: start: 20221027, end: 20221027
  2. PACLITAXEL [Suspect]
     Active Substance: PACLITAXEL
     Indication: Squamous cell carcinoma of lung
     Dates: start: 20221027, end: 20221027
  3. PEMBROLIZUMAB [Suspect]
     Active Substance: PEMBROLIZUMAB
     Indication: Squamous cell carcinoma of lung
     Dates: start: 20221031, end: 20221031
  4. DEXTROSE [Concomitant]
     Active Substance: DEXTROSE
     Indication: Squamous cell carcinoma of lung
     Dates: start: 20221027, end: 20221027
  5. SODIUM CHLORIDE [Concomitant]
     Active Substance: SODIUM CHLORIDE
     Indication: Squamous cell carcinoma of lung
     Dates: start: 20221027, end: 20221027
  6. SODIUM CHLORIDE [Concomitant]
     Active Substance: SODIUM CHLORIDE
     Dates: start: 20221031, end: 20221031

REACTIONS (1)
  - Hepatic function abnormal [Recovering/Resolving]

NARRATIVE: CASE EVENT DATE: 20221106
